FAERS Safety Report 6915004-4 (Version None)
Quarter: 2010Q3

REPORT INFORMATION
  Report Type: 
  Country: None (occurrence: None)
  Receive Date: 20100804
  Receipt Date: 20100722
  Transmission Date: 20110219
  Serious: Yes (Hospitalization)
  Sender: FDA-Public Use
  Company Number: 7012074

PATIENT
  Age: 56 Year
  Sex: Female
  Weight: 74 kg

DRUGS (6)
  1. REBIF [Suspect]
     Indication: MULTIPLE SCLEROSIS
     Dosage: 44 MCG, 3 IN 1 WK, SUBCUTANEOUS; 22 MCG, 3 IN 1 WK, SUBCUTANEOUS
     Route: 058
     Dates: end: 20100101
  2. REBIF [Suspect]
     Indication: MULTIPLE SCLEROSIS
     Dosage: 44 MCG, 3 IN 1 WK, SUBCUTANEOUS; 22 MCG, 3 IN 1 WK, SUBCUTANEOUS
     Route: 058
     Dates: start: 20100310
  3. GABAPENTIN [Concomitant]
  4. ZOLIPDEM (ALL OTHER THERAPEUTIC PRODUCTS) [Concomitant]
  5. FLUOXETINE [Concomitant]
  6. PRILOSEC OVER THE COUNTER (OMEPRAZOLE) [Concomitant]

REACTIONS (6)
  - APPENDICECTOMY [None]
  - DYSURIA [None]
  - GASTRIC DISORDER [None]
  - INFLUENZA LIKE ILLNESS [None]
  - OVARIAN MASS [None]
  - PAIN [None]
